FAERS Safety Report 5443146-1 (Version None)
Quarter: 2007Q3

REPORT INFORMATION
  Report Type: 
  Country: None (occurrence: None)
  Receive Date: 20070905
  Receipt Date: 20070827
  Transmission Date: 20080115
  Serious: Yes (Disabling)
  Sender: FDA-Public Use
  Company Number: US-PURDUE-USA_2007_0028950

PATIENT
  Sex: Male

DRUGS (1)
  1. OXYCONTIN [Suspect]
     Indication: DRUG USE FOR UNKNOWN INDICATION
     Dosage: UNK MG, UNK
     Route: 048
     Dates: start: 20060501, end: 20070701

REACTIONS (8)
  - ASTHENIA [None]
  - BLOOD TESTOSTERONE DECREASED [None]
  - BODY MASS INDEX DECREASED [None]
  - DEPRESSION [None]
  - ERECTILE DYSFUNCTION [None]
  - FATIGUE [None]
  - LIBIDO DECREASED [None]
  - WEIGHT INCREASED [None]
